FAERS Safety Report 10421031 (Version 1)
Quarter: 2014Q3

REPORT INFORMATION
  Report Type: Spontaneous
  Country: IN (occurrence: None)
  Receive Date: 20140828
  Receipt Date: 20140828
  Transmission Date: 20150326
  Serious: Yes (Hospitalization, Other)
  Sender: FDA-Public Use
  Company Number: AUR-APL-2014-09069

PATIENT
  Age: 17 Year
  Sex: Female
  Weight: 40.3 kg

DRUGS (6)
  1. CLOFAZIMINE [Suspect]
     Active Substance: CLOFAZIMINE
     Indication: TUBERCULOSIS
     Dosage: UNKNOWN
  2. CAPREOMYCIN [Suspect]
     Active Substance: CAPREOMYCIN
     Indication: TUBERCULOSIS
     Dosage: UNKNOWN
  3. AMOXICILLIN CLAVULANIC ACID [Suspect]
     Active Substance: AMOXICILLIN\CLAVULANIC ACID
     Indication: TUBERCULOSIS
  4. PARA-AMINOSALICYLIC ACID [Suspect]
     Active Substance: AMINOSALICYLIC ACID
     Indication: TUBERCULOSIS
     Dosage: 9.2 GRAM DIVIDED IN TWO DOSES PER DAY
  5. CYCLOSERINE. [Suspect]
     Active Substance: CYCLOSERINE
     Indication: TUBERCULOSIS
     Dosage: UNK
  6. MOXIFLOXACIN (MOXIFLOXACIN) [Suspect]
     Active Substance: MOXIFLOXACIN
     Indication: TUBERCULOSIS

REACTIONS (7)
  - Hypersensitivity [None]
  - Urticaria [None]
  - Angioedema [None]
  - Laryngospasm [None]
  - Pyrexia [None]
  - Rash morbilliform [None]
  - Dyspnoea [None]
